FAERS Safety Report 10993482 (Version 1)
Quarter: 2015Q2

REPORT INFORMATION
  Report Type: Spontaneous
  Country: JP (occurrence: JP)
  Receive Date: 20150407
  Receipt Date: 20150407
  Transmission Date: 20150821
  Serious: Yes (Other)
  Sender: FDA-Public Use
  Company Number: JP-ACCORD-029435

PATIENT
  Age: 64 Year
  Sex: Female

DRUGS (4)
  1. IRINOTECAN [Suspect]
     Active Substance: IRINOTECAN
     Indication: RECTAL CANCER METASTATIC
     Dosage: CPT11,?RECEIVED IN OCTOBER
  2. BEVACIZUMAB [Concomitant]
     Active Substance: BEVACIZUMAB
     Indication: RECTAL CANCER METASTATIC
     Dosage: RECEIVED IN OCTOBER
  3. FLUOROURACIL. [Suspect]
     Active Substance: FLUOROURACIL
     Indication: RECTAL CANCER METASTATIC
     Dosage: FOLFIRI CHEMOTHERAPY,?RECEIVED IN OCTOBER
  4. FOLINIC ACID [Suspect]
     Active Substance: LEUCOVORIN
     Indication: RECTAL CANCER METASTATIC
     Dosage: FOLFIRI CHEMOTHERAPY,?RECEIVED IN OCTOBER

REACTIONS (4)
  - Vomiting [Recovered/Resolved]
  - Febrile neutropenia [Unknown]
  - Decreased appetite [Unknown]
  - Nausea [Unknown]
